FAERS Safety Report 7285621-3 (Version None)
Quarter: 2011Q1

REPORT INFORMATION
  Report Type: 
  Country: None (occurrence: None)
  Receive Date: 20110210
  Receipt Date: 20110201
  Transmission Date: 20110831
  Serious: Yes (Hospitalization)
  Sender: FDA-Public Use
  Company Number: A0864152A

PATIENT
  Age: 60 Year
  Sex: Female

DRUGS (1)
  1. AVANDIA [Suspect]
     Dosage: 8MG PER DAY
     Route: 048
     Dates: start: 19990601, end: 20021001

REACTIONS (5)
  - CORONARY ARTERY DISEASE [None]
  - CARDIAC FAILURE CONGESTIVE [None]
  - CARDIAC PACEMAKER INSERTION [None]
  - IMPLANTABLE DEFIBRILLATOR INSERTION [None]
  - MYOCARDIAL INFARCTION [None]
